FAERS Safety Report 20131901 (Version 1)
Quarter: 2021Q4

REPORT INFORMATION
  Report Type: Spontaneous
  Country: SA (occurrence: SA)
  Receive Date: 20211130
  Receipt Date: 20211130
  Transmission Date: 20220303
  Serious: Yes (Other)
  Sender: FDA-Public Use
  Company Number: SA-UCBSA-2021056009

PATIENT
  Age: 25 Year
  Sex: Female

DRUGS (9)
  1. KEPPRA [Suspect]
     Active Substance: LEVETIRACETAM
     Indication: Generalised tonic-clonic seizure
     Dosage: 20 MG/KG
  2. KEPPRA [Suspect]
     Active Substance: LEVETIRACETAM
     Dosage: 1000 MILLIGRAM, 2X/DAY (BID)
  3. PROPOFOL [Concomitant]
     Active Substance: PROPOFOL
     Indication: Generalised tonic-clonic seizure
  4. MAGNESIUM SULFATE [Concomitant]
     Active Substance: MAGNESIUM SULFATE
     Indication: Blood pressure measurement
  5. LABETALOL [Concomitant]
     Active Substance: LABETALOL\LABETALOL HYDROCHLORIDE
     Indication: Blood pressure measurement
  6. NIMODIPINE [Concomitant]
     Active Substance: NIMODIPINE
     Indication: Reversible cerebral vasoconstriction syndrome
  7. NICARDIPINE [Concomitant]
     Active Substance: NICARDIPINE
     Indication: Reversible cerebral vasoconstriction syndrome
  8. MILRINONE [Concomitant]
     Active Substance: MILRINONE
     Indication: Reversible cerebral vasoconstriction syndrome
     Dosage: 75 MCG/KG/MIN
     Route: 042
  9. MILRINONE [Concomitant]
     Active Substance: MILRINONE
     Indication: Reversible cerebral vasoconstriction syndrome
     Dosage: 1.75 MCG/KG/MIN

REACTIONS (4)
  - Reversible cerebral vasoconstriction syndrome [Unknown]
  - Pneumonia staphylococcal [Unknown]
  - Tracheostomy [Unknown]
  - Maternal exposure during pregnancy [Unknown]
